FAERS Safety Report 19959502 (Version 1)
Quarter: 2021Q4

REPORT INFORMATION
  Report Type: Spontaneous
  Country: US (occurrence: US)
  Receive Date: 20211015
  Receipt Date: 20211015
  Transmission Date: 20220303
  Serious: Yes (Life-Threatening, Other)
  Sender: FDA-Public Use
  Company Number: US-MYLANLABS-2021M1072683

PATIENT
  Age: 57 Year
  Sex: Female
  Weight: 126 kg

DRUGS (1)
  1. YUPELRI [Suspect]
     Active Substance: REVEFENACIN
     Indication: Chronic obstructive pulmonary disease
     Dosage: 175MCG/3ML
     Route: 055

REACTIONS (2)
  - Throat tightness [Unknown]
  - Suffocation feeling [Unknown]
